FAERS Safety Report 15159941 (Version 1)
Quarter: 2018Q3

REPORT INFORMATION
  Report Type: Report from Study
  Country: ES (occurrence: ES)
  Receive Date: 20180718
  Receipt Date: 20180718
  Transmission Date: 20181010
  Serious: Yes (Hospitalization, Other)
  Sender: FDA-Public Use
  Company Number: ES-SA-2018SA183615

PATIENT
  Age: 80 Year
  Sex: Female

DRUGS (7)
  1. INDAPAMIDE. [Suspect]
     Active Substance: INDAPAMIDE
     Dosage: 1 DF
     Route: 048
     Dates: start: 20010101, end: 20170426
  2. AMLODIPINE [Concomitant]
     Active Substance: AMLODIPINE BESYLATE
     Dosage: 1 DF
     Route: 048
     Dates: start: 20010101
  3. SIMVASTATIN. [Concomitant]
     Active Substance: SIMVASTATIN
     Dosage: UNK UNK, QD
     Route: 048
     Dates: start: 20010101
  4. LEXATIN [BROMAZEPAM] [Concomitant]
     Dosage: 1 DF
     Route: 048
     Dates: start: 20130101
  5. FLUOXETINA [FLUOXETINE] [Concomitant]
     Dosage: UNK UNK, QD
     Route: 048
     Dates: start: 20130101
  6. SERC [THIORIDAZINE] [Concomitant]
     Dosage: 1 DF, TID
     Route: 048
  7. OMEPRAZOL [OMEPRAZOLE] [Concomitant]
     Dosage: 1 DF
     Route: 048
     Dates: start: 20010101

REACTIONS (4)
  - Polydipsia [Recovered/Resolved]
  - Metabolic alkalosis [Recovered/Resolved]
  - Hypokalaemia [Recovered/Resolved]
  - Decreased appetite [Recovered/Resolved]

NARRATIVE: CASE EVENT DATE: 20170426
